FAERS Safety Report 12442336 (Version 3)
Quarter: 2016Q3

REPORT INFORMATION
  Report Type: Report from Study
  Country: US (occurrence: US)
  Receive Date: 20160607
  Receipt Date: 20160708
  Transmission Date: 20161109
  Serious: Yes (Hospitalization)
  Sender: FDA-Public Use
  Company Number: PHEH2016US013525

PATIENT
  Age: 60 Year
  Sex: Female

DRUGS (2)
  1. GILENYA [Suspect]
     Active Substance: FINGOLIMOD HYDROCHLORIDE
     Indication: MULTIPLE SCLEROSIS
     Dosage: 0.5 MG, QD
     Route: 048
     Dates: end: 201511
  2. GILENYA [Suspect]
     Active Substance: FINGOLIMOD HYDROCHLORIDE
     Dosage: 0.5 MG, QD
     Route: 048
     Dates: start: 2016

REACTIONS (7)
  - Herpes zoster [Unknown]
  - Memory impairment [Not Recovered/Not Resolved]
  - Feeling of despair [Unknown]
  - Confusional state [Unknown]
  - Drug monitoring procedure not performed [Unknown]
  - Hypoacusis [Unknown]
  - Stress [Unknown]

NARRATIVE: CASE EVENT DATE: 201511
